FAERS Safety Report 7647816-6 (Version None)
Quarter: 2011Q3

REPORT INFORMATION
  Report Type: 
  Country: None (occurrence: None)
  Receive Date: 20110801
  Receipt Date: 20110726
  Transmission Date: 20111222
  Serious: Yes (Death)
  Sender: FDA-Public Use
  Company Number: GB-MERCK-1107GBR00108

PATIENT
  Sex: Male

DRUGS (1)
  1. CANCIDAS [Suspect]
     Route: 051

REACTIONS (1)
  - DEATH [None]
